FAERS Safety Report 15030328 (Version 1)
Quarter: 2018Q2

REPORT INFORMATION
  Report Type: Report from Study
  Country: ES (occurrence: ES)
  Receive Date: 20180619
  Receipt Date: 20180619
  Transmission Date: 20180711
  Serious: Yes (Hospitalization)
  Sender: FDA-Public Use
  Company Number: ES-TEVA-2018-ES-908772

PATIENT
  Age: 56 Year
  Sex: Male

DRUGS (14)
  1. ZALTRAP [Suspect]
     Active Substance: ZIV-AFLIBERCEPT
     Route: 041
  2. 5-FU [Suspect]
     Active Substance: FLUOROURACIL
     Route: 040
  3. LEUCOVORIN. [Suspect]
     Active Substance: LEUCOVORIN
     Indication: COLORECTAL CANCER METASTATIC
     Route: 041
     Dates: start: 20150406, end: 20150406
  4. IRINOTECAN [Suspect]
     Active Substance: IRINOTECAN
     Route: 065
  5. 5-FU [Suspect]
     Active Substance: FLUOROURACIL
     Indication: COLORECTAL CANCER METASTATIC
     Route: 040
     Dates: start: 20150406, end: 20150406
  6. DAFLON 500 MG COMPRIMIDOS RECUBIERTOS , 30 COMPRIMIDOS [Concomitant]
     Route: 065
     Dates: start: 20150511
  7. ZALTRAP [Suspect]
     Active Substance: ZIV-AFLIBERCEPT
     Indication: COLORECTAL CANCER METASTATIC
     Route: 041
     Dates: start: 20150406, end: 20150406
  8. DUPHALAC SOLUCION ORAL SOBRES , 10 SOBRES [Concomitant]
     Route: 065
     Dates: start: 20150504
  9. 5-FU [Suspect]
     Active Substance: FLUOROURACIL
     Route: 041
     Dates: start: 20150406, end: 20150406
  10. IBUPROFENO [Concomitant]
     Active Substance: IBUPROFEN
     Route: 065
     Dates: start: 20150511
  11. RUSCUS LLORENS POMADA, 1 TUBO DE 30 G [Concomitant]
     Route: 065
     Dates: start: 20150504
  12. IRINOTECAN [Suspect]
     Active Substance: IRINOTECAN
     Indication: COLORECTAL CANCER METASTATIC
     Route: 065
     Dates: start: 20150406, end: 20150406
  13. LEUCOVORIN. [Suspect]
     Active Substance: LEUCOVORIN
     Route: 041
  14. MYCOSTATIN 100.000 UI/ML SUSPENSION ORAL , 1 FRASCO DE 30 ML [Concomitant]
     Route: 065
     Dates: start: 20150525

REACTIONS (1)
  - Pelvic fluid collection [Recovered/Resolved]

NARRATIVE: CASE EVENT DATE: 20151012
